FAERS Safety Report 14162570 (Version 2)
Quarter: 2018Q1

REPORT INFORMATION
  Report Type: Report from Study
  Country: KR (occurrence: KR)
  Receive Date: 20171106
  Receipt Date: 20180117
  Transmission Date: 20180508
  Serious: Yes (Hospitalization)
  Sender: FDA-Public Use
  Company Number: KR-TAKEDA-2017TEU004664

PATIENT
  Age: 66 Year
  Sex: Female
  Weight: 69 kg

DRUGS (19)
  1. ALOGLIPTIN. [Suspect]
     Active Substance: ALOGLIPTIN
     Indication: TYPE 2 DIABETES MELLITUS
     Dosage: 25 MG, QD
     Route: 048
     Dates: start: 20170524, end: 20170820
  2. ROVETIN [Concomitant]
     Indication: PROPHYLAXIS
     Dosage: UNK UNK, QD
     Route: 048
     Dates: start: 20170820
  3. CRESTOR [Concomitant]
     Active Substance: ROSUVASTATIN CALCIUM
     Indication: PROPHYLAXIS
     Dosage: UNK UNK, QD
     Route: 048
     Dates: start: 20170821, end: 20170905
  4. MYPOL                              /00020001/ [Concomitant]
     Indication: PAIN PROPHYLAXIS
     Dosage: UNK UNK, TID
     Route: 048
     Dates: start: 20171218
  5. ALOGLIPTIN. [Suspect]
     Active Substance: ALOGLIPTIN
     Dosage: 25 MG, QD
     Route: 048
     Dates: start: 20170912
  6. FLASINYL [Concomitant]
     Indication: INFECTION PROPHYLAXIS
     Dosage: UNK UNK, QD
     Route: 048
     Dates: start: 20171219
  7. TRAJENTA [Concomitant]
     Active Substance: LINAGLIPTIN
     Indication: TYPE 2 DIABETES MELLITUS
     Dosage: UNK UNK, QD
     Route: 048
     Dates: start: 20170822, end: 20170905
  8. EPOCELIN [Concomitant]
     Active Substance: CEFTIZOXIME SODIUM
     Indication: APPENDICITIS
     Dosage: UNK UNK, TID
     Route: 042
     Dates: start: 20171215
  9. GASTER [Concomitant]
     Active Substance: FAMOTIDINE
     Indication: PROPHYLAXIS AGAINST GASTROINTESTINAL ULCER
     Dosage: UNK UNK, BID
     Route: 042
     Dates: start: 20171215
  10. ESOMEZOL                           /01479302/ [Concomitant]
     Indication: PROPHYLAXIS AGAINST GASTROINTESTINAL ULCER
     Dosage: UNK UNK, QD
     Route: 048
     Dates: start: 20170820
  11. ESOMEZOL                           /01479302/ [Concomitant]
     Dosage: UNK UNK, QD
     Route: 048
     Dates: start: 20170906
  12. FLAGYL [Concomitant]
     Active Substance: METRONIDAZOLE\METRONIDAZOLE HYDROCHLORIDE
     Indication: APPENDICITIS
     Dosage: UNK UNK, TID
     Route: 042
     Dates: start: 20171215
  13. VARIDASE [Concomitant]
     Indication: PROPHYLAXIS
     Dosage: UNK UNK, TID
     Route: 048
     Dates: start: 20171218
  14. OMNICEF                            /00497602/ [Concomitant]
     Active Substance: CEFOTAXIME SODIUM
     Indication: INFECTION PROPHYLAXIS
     Dosage: UNK UNK, TID
     Route: 048
     Dates: start: 20171219
  15. ROVETIN [Concomitant]
     Dosage: UNK UNK, QD
     Route: 048
     Dates: start: 20170906
  16. DIAMICRON [Concomitant]
     Active Substance: GLICLAZIDE
     Indication: TYPE 2 DIABETES MELLITUS
     Dosage: UNK UNK, QD
     Route: 048
  17. SEVIKAR HCT [Concomitant]
     Active Substance: AMLODIPINE BESYLATE\HYDROCHLOROTHIAZIDE\OLMESARTAN MEDOXOMIL
     Indication: ESSENTIAL HYPERTENSION
     Dosage: UNK UNK, QD
     Route: 048
     Dates: start: 20160726
  18. PENIRAMIN [Concomitant]
     Indication: PROPHYLAXIS
     Dosage: UNK UNK, QD
     Route: 042
     Dates: start: 20171215
  19. LANSTON [Concomitant]
     Active Substance: LANSOPRAZOLE
     Indication: PROPHYLAXIS AGAINST GASTROINTESTINAL ULCER
     Dosage: UNK UNK, QD
     Route: 048
     Dates: start: 20170821, end: 20170905

REACTIONS (2)
  - Appendicitis [Recovered/Resolved]
  - Chest discomfort [Recovered/Resolved]

NARRATIVE: CASE EVENT DATE: 20170820
